FAERS Safety Report 22229012 (Version 4)
Quarter: 2023Q2

REPORT INFORMATION
  Report Type: Spontaneous
  Country: JP (occurrence: JP)
  Receive Date: 20230419
  Receipt Date: 20230525
  Transmission Date: 20230721
  Serious: Yes (Hospitalization)
  Sender: FDA-Public Use
  Company Number: JP-Eisai-202300427_DVG_P_1

PATIENT
  Age: 36 Year
  Sex: Male

DRUGS (5)
  1. DAYVIGO [Suspect]
     Active Substance: LEMBOREXANT
     Indication: Sleep disorder
     Dosage: BEFORE BED TIME
     Route: 048
  2. DAYVIGO [Suspect]
     Active Substance: LEMBOREXANT
     Dosage: A DOSE OF 20 TABLETS
     Route: 048
  3. DAYVIGO [Suspect]
     Active Substance: LEMBOREXANT
     Dosage: DOSE UNKNOWN AND FREQUENCY
     Route: 048
  4. ZOLPIDEM TARTRATE [Suspect]
     Active Substance: ZOLPIDEM TARTRATE
     Indication: Sleep disorder
     Route: 048
  5. ZOLPIDEM TARTRATE [Suspect]
     Active Substance: ZOLPIDEM TARTRATE
     Dosage: A DOSE OF 20 TABLETS
     Route: 048

REACTIONS (4)
  - Hypoglycaemia [Recovering/Resolving]
  - Coma [Recovering/Resolving]
  - Toxicity to various agents [Recovered/Resolved]
  - Accidental overdose [Recovering/Resolving]
